FAERS Safety Report 5107644-2 (Version None)
Quarter: 2006Q3

REPORT INFORMATION
  Report Type: 
  Country: None (occurrence: None)
  Receive Date: 20060914
  Receipt Date: 20060904
  Transmission Date: 20061208
  Serious: Yes (Hospitalization)
  Sender: FDA-Public Use
  Company Number: 2006107157

PATIENT
  Age: 74 Year
  Sex: Male

DRUGS (9)
  1. ALDACTONE [Suspect]
     Indication: DRUG USE FOR UNKNOWN INDICATION
     Dosage: 25 MG, ORAL
     Route: 048
  2. FAMOTIDINE [Suspect]
     Indication: DRUG USE FOR UNKNOWN INDICATION
  3. TAMSULOSIN HCL [Suspect]
     Indication: DRUG USE FOR UNKNOWN INDICATION
     Dosage: ORAL
     Route: 048
  4. DIGOXIN [Concomitant]
  5. BIOFERMIN (BACILLUS SUBTILIS, LACTOBACILLUS ACIDOPHILUS, STREPTOCOCCUS [Concomitant]
  6. LENDORM [Concomitant]
  7. LASIX [Concomitant]
  8. MEXITIL [Concomitant]
  9. GRAMALIL (TIAPRIDE HYDROCHLORIDE) [Concomitant]

REACTIONS (3)
  - BREAST PAIN [None]
  - CEREBRAL INFARCTION [None]
  - GYNAECOMASTIA [None]
